FAERS Safety Report 6040316-9 (Version None)
Quarter: 2009Q1

REPORT INFORMATION
  Report Type: 
  Country: None (occurrence: None)
  Receive Date: 20090116
  Receipt Date: 20080403
  Transmission Date: 20090719
  Serious: No
  Sender: FDA-Public Use
  Company Number: US-BRISTOL-MYERS SQUIBB COMPANY-14074884

PATIENT
  Age: 76 Year
  Sex: Female
  Weight: 73 kg

DRUGS (3)
  1. ABILIFY [Suspect]
     Indication: DEPRESSION
     Dosage: THERAPY WITH ARIPIPRAZOLE FROM 22-DEC UPTO THREE WEEKS AGO.
     Dates: end: 20080101
  2. ABILIFY [Suspect]
     Dates: end: 20080101
  3. EFFEXOR [Concomitant]

REACTIONS (5)
  - ANXIETY [None]
  - BACK PAIN [None]
  - DYSKINESIA [None]
  - NERVOUSNESS [None]
  - PAIN IN EXTREMITY [None]
